FAERS Safety Report 20878311 (Version 1)
Quarter: 2022Q2

REPORT INFORMATION
  Report Type: Spontaneous
  Country: US (occurrence: US)
  Receive Date: 20220526
  Receipt Date: 20220526
  Transmission Date: 20220721
  Serious: No
  Sender: FDA-Public Use
  Company Number: US-GALDERMA-US2021014356

PATIENT

DRUGS (2)
  1. DIFFERIN DARK SPOT CORRECTING SERUM [Suspect]
     Active Substance: HYDROQUINONE
     Indication: Post inflammatory pigmentation change
     Dosage: 1 DOSAGE FORM
     Route: 061
  2. ADAPALENE [Suspect]
     Active Substance: ADAPALENE
     Indication: Product used for unknown indication
     Dosage: 1 DOSAGE FORM
     Route: 061

REACTIONS (1)
  - Drug ineffective [Unknown]
